FAERS Safety Report 21691815 (Version 1)
Quarter: 2022Q4

REPORT INFORMATION
  Report Type: Spontaneous
  Country: CN (occurrence: CN)
  Receive Date: 20221207
  Receipt Date: 20221207
  Transmission Date: 20230113
  Serious: Yes (Hospitalization, Other)
  Sender: FDA-Public Use
  Company Number: None

PATIENT
  Age: 74 Year
  Sex: Female
  Weight: 58 kg

DRUGS (4)
  1. CYCLOPHOSPHAMIDE [Suspect]
     Active Substance: CYCLOPHOSPHAMIDE
     Indication: Breast cancer female
     Dosage: 0.8 G, QD (DILUTED WITH SODIUM CHLORIDE INJECTION 250 ML)
     Route: 041
     Dates: start: 20221117, end: 20221117
  2. EPIRUBICIN HYDROCHLORIDE [Suspect]
     Active Substance: EPIRUBICIN HYDROCHLORIDE
     Indication: Breast cancer female
     Dosage: 130 MG, QD (DILUTED WITH GLUCOSE INJECTION 250 ML)
     Route: 041
     Dates: start: 20221117, end: 20221117
  3. SODIUM CHLORIDE [Concomitant]
     Active Substance: SODIUM CHLORIDE
     Indication: Vehicle solution use
     Dosage: 250 ML, QD (USED TO DILUTE CYCLOPHOSPHAMIDE INJECTION 0.80 G)
     Route: 041
     Dates: start: 20221117, end: 20221117
  4. DEXTROSE [Concomitant]
     Active Substance: DEXTROSE
     Indication: Vehicle solution use
     Dosage: 250 ML, QD (USED TO DILUTE EPIRUBICIN HYDROCHLORIDE INJECTION 130 MG)
     Route: 041
     Dates: start: 20221117, end: 20221117

REACTIONS (6)
  - Back pain [Recovered/Resolved]
  - Asthenia [Recovered/Resolved]
  - Pyrexia [Recovered/Resolved]
  - White blood cell count decreased [Recovered/Resolved]
  - Neutrophil count decreased [Recovered/Resolved]
  - Myelosuppression [Recovered/Resolved]

NARRATIVE: CASE EVENT DATE: 20221124
